FAERS Safety Report 6424897-9 (Version None)
Quarter: 2009Q4

REPORT INFORMATION
  Report Type: 
  Country: None (occurrence: None)
  Receive Date: 20091103
  Receipt Date: 20091021
  Transmission Date: 20100525
  Serious: Yes (Hospitalization, Other)
  Sender: FDA-Public Use
  Company Number: US-ELI_LILLY_AND_COMPANY-US200910005229

PATIENT
  Sex: Female

DRUGS (5)
  1. FORTEO [Suspect]
     Dosage: 20 UG, DAILY (1/D)
     Dates: start: 20090101
  2. PROCARDIA [Concomitant]
     Dosage: 90 MG, UNK
  3. KLOR-CON [Concomitant]
  4. PREDNISONE [Concomitant]
  5. COUMADIN [Concomitant]

REACTIONS (2)
  - FACIAL PALSY [None]
  - TRANSIENT ISCHAEMIC ATTACK [None]
